FAERS Safety Report 14971354 (Version 1)
Quarter: 2018Q2

REPORT INFORMATION
  Report Type: Spontaneous
  Country: SA (occurrence: SA)
  Receive Date: 20180514
  Receipt Date: 20180514
  Transmission Date: 20180711
  Serious: Yes (Life-Threatening, Hospitalization)
  Sender: FDA-Public Use
  Company Number: None

PATIENT
  Age: 73 Year
  Sex: Female

DRUGS (1)
  1. RIFAMPECIN [Suspect]
     Active Substance: RIFAMPIN

REACTIONS (3)
  - Jaundice [None]
  - Renal failure [None]
  - Dialysis [None]

NARRATIVE: CASE EVENT DATE: 20180502
